FAERS Safety Report 21589374 (Version 8)
Quarter: 2025Q1

REPORT INFORMATION
  Report Type: Report from Study
  Country: IN (occurrence: IN)
  Receive Date: 20221114
  Receipt Date: 20250221
  Transmission Date: 20250408
  Serious: Yes (Other)
  Sender: NOVARTIS
  Company Number: IN-002147023-NVSC2022IN252902

PATIENT
  Age: 35 Year
  Sex: Female

DRUGS (3)
  1. RIBOCICLIB [Suspect]
     Active Substance: RIBOCICLIB
     Indication: Breast cancer metastatic
     Dosage: 600 MG, QD
     Route: 048
     Dates: start: 20211209
  2. RIBOCICLIB [Suspect]
     Active Substance: RIBOCICLIB
     Indication: Hormone receptor positive HER2 negative breast cancer
     Dosage: 600 MG, QD
     Route: 048
     Dates: start: 20211213
  3. RIBOCICLIB [Suspect]
     Active Substance: RIBOCICLIB
     Dosage: 600 MG, QD (3 TABLETS OF 200 MG) (3-0-0)
     Route: 048
     Dates: start: 20220909

REACTIONS (13)
  - Breast mass [Recovering/Resolving]
  - Pain [Recovering/Resolving]
  - Lymphadenopathy [Recovering/Resolving]
  - Osteolysis [Recovering/Resolving]
  - Resorption bone increased [Recovering/Resolving]
  - Osteosclerosis [Unknown]
  - Skin disorder [Unknown]
  - Arthralgia [Unknown]
  - Eastern Cooperative Oncology Group performance status abnormal [Unknown]
  - Bone lesion [Unknown]
  - Pain in extremity [Unknown]
  - Blood alkaline phosphatase abnormal [Unknown]
  - Blood calcium abnormal [Unknown]

NARRATIVE: CASE EVENT DATE: 20211209
